FAERS Safety Report 7253087-5 (Version None)
Quarter: 2011Q1

REPORT INFORMATION
  Report Type: 
  Country: None (occurrence: None)
  Receive Date: 20110129
  Receipt Date: 20100319
  Transmission Date: 20110831
  Serious: Yes (Other)
  Sender: FDA-Public Use
  Company Number: US-ABBOTT-10P-163-0622497-00

PATIENT
  Sex: Female
  Weight: 99.88 kg

DRUGS (2)
  1. METHOTREXATE [Concomitant]
     Indication: PSORIASIS
     Route: 048
  2. HUMIRA [Suspect]
     Indication: PSORIASIS
     Route: 058
     Dates: end: 20091208

REACTIONS (1)
  - BREAST CANCER [None]
